FAERS Safety Report 14879015 (Version 2)
Quarter: 2018Q2

REPORT INFORMATION
  Report Type: Spontaneous
  Country: DE (occurrence: DE)
  Receive Date: 20180511
  Receipt Date: 20180611
  Transmission Date: 20180711
  Serious: Yes (Hospitalization, Other)
  Sender: FDA-Public Use
  Company Number: DE-AMGEN-DEUSP2018062141

PATIENT
  Age: 64 Year
  Sex: Female
  Weight: 52 kg

DRUGS (3)
  1. PROLIA [Suspect]
     Active Substance: DENOSUMAB
     Indication: OSTEOPOROSIS
     Dosage: UNK UNK, Q6MO
     Route: 058
     Dates: start: 20120718, end: 201603
  2. IBUPROFEN. [Concomitant]
     Active Substance: IBUPROFEN
     Indication: ANALGESIC THERAPY
     Dosage: 600 MG, 2-3 DAY
     Dates: start: 201703
  3. DEKRISTOL [Concomitant]
     Active Substance: CHOLECALCIFEROL
     Indication: OSTEOPOROSIS
     Dosage: 2000 E, QMO
     Dates: start: 2012

REACTIONS (2)
  - Lumbar vertebral fracture [Recovering/Resolving]
  - Thoracic vertebral fracture [Recovering/Resolving]

NARRATIVE: CASE EVENT DATE: 201603
